FAERS Safety Report 19769899 (Version 26)
Quarter: 2024Q4

REPORT INFORMATION
  Report Type: Report from Study
  Country: JP (occurrence: JP)
  Receive Date: 20210831
  Receipt Date: 20241127
  Transmission Date: 20250115
  Serious: Yes (Life-Threatening, Hospitalization, Other)
  Sender: BRISTOL-MYERS SQUIBB COMPANY
  Company Number: JP-BRISTOL-MYERS SQUIBB COMPANY-BMS-2021-086210

PATIENT
  Age: 79 Year
  Sex: Male
  Weight: 48 kg

DRUGS (18)
  1. YERVOY [Suspect]
     Active Substance: IPILIMUMAB
     Indication: Metastatic renal cell carcinoma
     Route: 041
     Dates: start: 20210804, end: 20210804
  2. OPDIVO [Suspect]
     Active Substance: NIVOLUMAB
     Indication: Metastatic renal cell carcinoma
     Route: 041
     Dates: start: 20210804, end: 20210804
  3. FERROUS SULFATE [Suspect]
     Active Substance: FERROUS SULFATE
     Indication: Product used for unknown indication
  4. PREDONINE [Suspect]
     Active Substance: PREDNISOLONE
     Indication: Hepatic function abnormal
     Route: 041
     Dates: start: 20210825, end: 20210827
  5. PREDONINE [Suspect]
     Active Substance: PREDNISOLONE
     Route: 041
     Dates: start: 20210828, end: 20210830
  6. PREDONINE [Suspect]
     Active Substance: PREDNISOLONE
     Route: 041
     Dates: start: 20210923, end: 20210925
  7. PREDONINE [Suspect]
     Active Substance: PREDNISOLONE
     Route: 041
     Dates: start: 20210926, end: 20210930
  8. SODIUM CHLORIDE [Concomitant]
     Active Substance: SODIUM CHLORIDE
     Indication: Product used for unknown indication
  9. DIOVAN [Concomitant]
     Active Substance: VALSARTAN
     Indication: Product used for unknown indication
  10. ASPIRIN [Concomitant]
     Active Substance: ASPIRIN
     Indication: Product used for unknown indication
     Route: 048
  11. DILTIAZEM HYDROCHLORIDE [Concomitant]
     Active Substance: DILTIAZEM HYDROCHLORIDE
     Indication: Product used for unknown indication
     Route: 048
  12. ISOSORBIDE DINITRATE [Concomitant]
     Active Substance: ISOSORBIDE DINITRATE
     Indication: Product used for unknown indication
     Route: 062
  13. ISOSORBIDE DINITRATE [Concomitant]
     Active Substance: ISOSORBIDE DINITRATE
  14. LIVALO [Concomitant]
     Active Substance: PITAVASTATIN CALCIUM
     Indication: Product used for unknown indication
     Dosage: ORALLY DISINTEGRATING
     Route: 048
  15. ICOSAPENT ETHYL [Concomitant]
     Active Substance: ICOSAPENT ETHYL
     Indication: Product used for unknown indication
  16. ASPIRIN [Concomitant]
     Active Substance: ASPIRIN
     Indication: Product used for unknown indication
  17. SODIUM CHLORIDE [Concomitant]
     Active Substance: SODIUM CHLORIDE
     Indication: Product used for unknown indication
  18. NEXIUM [Concomitant]
     Active Substance: ESOMEPRAZOLE MAGNESIUM
     Indication: Product used for unknown indication
     Route: 048

REACTIONS (14)
  - Ocular myasthenia [Recovered/Resolved]
  - Atrioventricular block complete [Recovering/Resolving]
  - Myocarditis [Recovering/Resolving]
  - Hepatic function abnormal [Recovering/Resolving]
  - Myasthenia gravis [Recovered/Resolved]
  - Acute kidney injury [Recovering/Resolving]
  - Malignant neoplasm progression [Unknown]
  - Rhabdomyolysis [Unknown]
  - Gastrointestinal haemorrhage [Unknown]
  - Immune-mediated myositis [Unknown]
  - Pneumonia aspiration [Recovered/Resolved]
  - Glucose tolerance impaired [Recovered/Resolved]
  - Occult blood positive [Unknown]
  - Faeces discoloured [Unknown]

NARRATIVE: CASE EVENT DATE: 20210824
